FAERS Safety Report 20458477 (Version 1)
Quarter: 2022Q1

REPORT INFORMATION
  Report Type: Spontaneous
  Country: NL (occurrence: NL)
  Receive Date: 20220211
  Receipt Date: 20220211
  Transmission Date: 20220423
  Serious: Yes (Hospitalization)
  Sender: FDA-Public Use
  Company Number: NL-SUN PHARMACEUTICAL INDUSTRIES LTD-2022RR-326408

PATIENT
  Age: 61 Year
  Sex: Male
  Weight: 106 kg

DRUGS (8)
  1. ESOMEPRAZOLE [Interacting]
     Active Substance: ESOMEPRAZOLE
     Indication: Prophylaxis
     Dosage: 40 MILLIGRAM, BID, 2X PER DAY 1 PIECE
     Route: 065
     Dates: start: 20201124
  2. CLOPIDOGREL [Interacting]
     Active Substance: CLOPIDOGREL BISULFATE
     Indication: Product used for unknown indication
     Dosage: TABLET, 75 MG (MILLIGRAM)
     Route: 065
  3. BISOPROLOL/PERINDOPRIL-ARGININE TABLET  5/ 5MG / Brand name not spe... [Concomitant]
     Indication: Product used for unknown indication
     Dosage: 2,5 MG
     Route: 065
  4. BISOPROLOL TABLET   2,5MG / BISOPROLOLFUMARAAT DECO AUROB TABL FILM... [Concomitant]
     Indication: Product used for unknown indication
     Dosage: 2,5 MG
     Route: 065
  5. ROPINIROL TABLET OMHULD 0,25MG / Brand name not specifiedROPINIROL ... [Concomitant]
     Indication: Product used for unknown indication
     Dosage: COATED TABLET, 0.25 MG (MILLIGRAMS)
     Route: 065
  6. PANTOPRAZOL TABLET MSR 40MG / PANTOPRAZOL 1A PHARMA TABLET MSR 40MG... [Concomitant]
     Indication: Product used for unknown indication
     Dosage: 40MG. THIS WAS GIVEN ON JANUARY 18, 2021 AS A TAR REPLACEMENT FOR ESOMEPRASOL.
     Route: 065
  7. SIMVASTATINE TABLET FO 40MG / SIMVASTATINE SANDOZ TABLET FILMOMHULD... [Concomitant]
     Indication: Product used for unknown indication
     Dosage: 40 MG
     Route: 065
  8. VALPROINEZUUR TABLET MSR 500MG / DEPAKINE ENTERIC TABLET MSR 500MGD... [Concomitant]
     Indication: Product used for unknown indication
     Dosage: GASTRO-RESISTANT TABLET, 500 MG (MILLIGRAM)
     Route: 065

REACTIONS (7)
  - Extrasystoles [Recovered/Resolved]
  - Head discomfort [Recovered/Resolved]
  - Drug interaction [Unknown]
  - Headache [Recovered/Resolved]
  - Heart rate irregular [Recovered/Resolved]
  - Gynaecomastia [Not Recovered/Not Resolved]
  - Peripheral coldness [Recovering/Resolving]

NARRATIVE: CASE EVENT DATE: 20201208
